APPROVED DRUG PRODUCT: FENOPROFEN CALCIUM
Active Ingredient: FENOPROFEN CALCIUM
Strength: EQ 600MG BASE
Dosage Form/Route: TABLET;ORAL
Application: A072267 | Product #001
Applicant: PHARMACO LLC
Approved: Aug 17, 1988 | RLD: No | RS: No | Type: DISCN